FAERS Safety Report 8503136-9 (Version None)
Quarter: 2012Q3

REPORT INFORMATION
  Report Type: 
  Country: None (occurrence: None)
  Receive Date: 20120711
  Receipt Date: 20120629
  Transmission Date: 20120928
  Serious: Yes (Other)
  Sender: FDA-Public Use
  Company Number: BR-UCBSA-061090

PATIENT
  Age: 16 Year
  Sex: Female

DRUGS (3)
  1. HIXIZINE [Concomitant]
  2. LEVOCETIRIZINE DIHYDROCHLORIDE [Suspect]
     Indication: ALLERGIC COUGH
     Dosage: 1 TAB
     Route: 048
     Dates: start: 20120619, end: 20120620
  3. LEVOCETIRIZINE DIHYDROCHLORIDE [Suspect]
     Indication: URTICARIA
     Dosage: 1 TAB
     Route: 048
     Dates: start: 20120619, end: 20120620

REACTIONS (3)
  - CONDITION AGGRAVATED [None]
  - URTICARIA [None]
  - COUGH [None]
